FAERS Safety Report 18391880 (Version 1)
Quarter: 2020Q4

REPORT INFORMATION
  Report Type: Spontaneous
  Country: NL (occurrence: NL)
  Receive Date: 20201016
  Receipt Date: 20201016
  Transmission Date: 20210114
  Serious: Yes (Life-Threatening, Hospitalization)
  Sender: FDA-Public Use
  Company Number: NL-HIKMA PHARMACEUTICALS USA INC.-NL-H14001-20-52295

PATIENT
  Sex: Female
  Weight: 73.2 kg

DRUGS (4)
  1. PROPOFOL. [Concomitant]
     Active Substance: PROPOFOL
     Indication: PRODUCT USED FOR UNKNOWN INDICATION
     Dosage: 5 MG/ML
     Route: 065
  2. CEFTRIAXONE. [Suspect]
     Active Substance: CEFTRIAXONE
     Indication: KLEBSIELLA BACTERAEMIA
     Dosage: 10 MG/ML (MILLIGRAM PER MILLILITER)
     Route: 065
     Dates: start: 20200822, end: 20200826
  3. METRONIDAZOLE. [Suspect]
     Active Substance: METRONIDAZOLE
     Indication: KLEBSIELLA BACTERAEMIA
     Dosage: UKNOWN
     Route: 065
     Dates: start: 20200822, end: 20200826
  4. DABIGATRAN ETEXILAAT [Concomitant]
     Indication: PRODUCT USED FOR UNKNOWN INDICATION
     Dosage: CAPSULE, 110 MG (MILLIGRAM)
     Route: 065

REACTIONS (4)
  - Seizure [Recovered/Resolved]
  - Postictal paralysis [Recovered/Resolved]
  - Delirium [Recovered/Resolved]
  - Rash erythematous [Recovered/Resolved]
